FAERS Safety Report 23105859 (Version 2)
Quarter: 2023Q4

REPORT INFORMATION
  Report Type: Spontaneous
  Country: US (occurrence: US)
  Receive Date: 20231025
  Receipt Date: 20231101
  Transmission Date: 20240109
  Serious: Yes (Other)
  Sender: FDA-Public Use
  Company Number: US-GE HEALTHCARE-2023CSU009205

PATIENT
  Age: 47 Year
  Sex: Female
  Weight: 52.154 kg

DRUGS (2)
  1. OMNIPAQUE [Suspect]
     Active Substance: IOHEXOL
     Indication: Computerised tomogram abdomen
     Dosage: 96 ML (VIA POWER PUMP), ONCE
     Route: 042
     Dates: start: 20231012, end: 20231012
  2. OMNIPAQUE [Suspect]
     Active Substance: IOHEXOL
     Indication: Pancreatic failure

REACTIONS (6)
  - Peripheral swelling [Recovering/Resolving]
  - Burning sensation [Recovering/Resolving]
  - Extravasation [Recovering/Resolving]
  - Pain in extremity [Recovering/Resolving]
  - Feeling hot [Recovering/Resolving]
  - Injection site erythema [Unknown]

NARRATIVE: CASE EVENT DATE: 20231012
